FAERS Safety Report 10758323 (Version 1)
Quarter: 2015Q1

REPORT INFORMATION
  Report Type: Spontaneous
  Country: FR (occurrence: FR)
  Receive Date: 20150203
  Receipt Date: 20150203
  Transmission Date: 20150721
  Serious: Yes (Hospitalization)
  Sender: FDA-Public Use
  Company Number: FR-PFIZER INC-2015022082

PATIENT
  Age: 83 Year
  Sex: Male

DRUGS (10)
  1. RISPERDAL [Suspect]
     Active Substance: RISPERIDONE
     Dosage: 1 MG, DAILY
     Route: 048
     Dates: end: 20141215
  2. EXFORGE [Concomitant]
     Active Substance: AMLODIPINE BESYLATE\VALSARTAN
     Dosage: 10 MG + 60 MG, 1 DF, DAILY
     Route: 048
  3. TENORMIN [Suspect]
     Active Substance: ATENOLOL
     Dosage: 50 MG, DAILY
     Route: 048
     Dates: end: 20141215
  4. JANUVIA [Concomitant]
     Active Substance: SITAGLIPTIN PHOSPHATE
     Dosage: 100 MG, DAILY
     Route: 048
  5. MODOPAR [Suspect]
     Active Substance: BENSERAZIDE HYDROCHLORIDE\LEVODOPA
     Dosage: 200 MG + 50 MG, 1 DF, 3X/DAY
     Route: 048
     Dates: end: 20141215
  6. ELISOR [Concomitant]
     Active Substance: PRAVASTATIN SODIUM
     Dosage: 20 MG, DAILY
     Route: 048
  7. KARDEGIC [Concomitant]
     Active Substance: ASPIRIN LYSINE
     Dosage: 75 MG, DAILY
     Route: 048
  8. ZYLORIC [Concomitant]
     Active Substance: ALLOPURINOL
     Dosage: 100 MG, DAILY
     Route: 048
  9. AZILECT [Concomitant]
     Active Substance: RASAGILINE MESYLATE
     Dosage: 1 MG, DAILY
     Route: 048
  10. EXELON [Concomitant]
     Active Substance: RIVASTIGMINE TARTRATE
     Dosage: 9.5 MG/24 HOURS
     Route: 062

REACTIONS (5)
  - Fall [Unknown]
  - Hypotension [Unknown]
  - Disorientation [Unknown]
  - Bradycardia [Unknown]
  - Hyponatraemia [Unknown]

NARRATIVE: CASE EVENT DATE: 20141214
